FAERS Safety Report 26213016 (Version 1)
Quarter: 2025Q4

REPORT INFORMATION
  Report Type: Spontaneous
  Country: US (occurrence: US)
  Receive Date: 20251230
  Receipt Date: 20251230
  Transmission Date: 20260118
  Serious: Yes (Other)
  Sender: SANOFI AVENTIS
  Company Number: US-SA-2025SA388104

PATIENT
  Age: 23 Year
  Sex: Female
  Weight: 79.55 kg

DRUGS (1)
  1. DUPIXENT [Suspect]
     Active Substance: DUPILUMAB
     Indication: Eosinophilic oesophagitis
     Dosage: 300 MG, QW
     Route: 058
     Dates: start: 20250717

REACTIONS (9)
  - Mast cell activation syndrome [Unknown]
  - Back pain [Unknown]
  - Ocular hyperaemia [Unknown]
  - Gait disturbance [Unknown]
  - Gastrooesophageal reflux disease [Unknown]
  - Abdominal pain upper [Unknown]
  - Arthralgia [Unknown]
  - Eosinophilic oesophagitis [Unknown]
  - Rash [Unknown]

NARRATIVE: CASE EVENT DATE: 20250101
